FAERS Safety Report 21931082 (Version 1)
Quarter: 2023Q1

REPORT INFORMATION
  Report Type: Spontaneous
  Country: US (occurrence: None)
  Receive Date: 20230130
  Receipt Date: 20230130
  Transmission Date: 20230417
  Serious: Yes (Hospitalization, Disabling)
  Sender: FDA-Public Use
  Company Number: None

PATIENT
  Age: 60 Year
  Sex: Female
  Weight: 63 kg

DRUGS (1)
  1. YUTOPAR [Suspect]
     Active Substance: RITODRINE HYDROCHLORIDE
     Indication: Premature labour
     Dates: start: 19880701, end: 19880901

REACTIONS (7)
  - Bipolar disorder [None]
  - Nervous system disorder [None]
  - Depression [None]
  - Disturbance in attention [None]
  - Exposure during pregnancy [None]
  - Maternal drugs affecting foetus [None]
  - Product use in unapproved indication [None]

NARRATIVE: CASE EVENT DATE: 19880701
